FAERS Safety Report 7141745-2 (Version None)
Quarter: 2010Q4

REPORT INFORMATION
  Report Type: 
  Country: None (occurrence: None)
  Receive Date: 20101207
  Receipt Date: 20101124
  Transmission Date: 20110411
  Serious: Yes (Death, Life-Threatening, Other)
  Sender: FDA-Public Use
  Company Number: PL-MEDIMMUNE-MEDI-0011760

PATIENT
  Sex: Female
  Weight: 3.2 kg

DRUGS (8)
  1. SYNAGIS [Suspect]
     Indication: BRONCHOPULMONARY DYSPLASIA
     Route: 030
     Dates: start: 20101105, end: 20101105
  2. SYNAGIS [Suspect]
  3. OXYGEN [Concomitant]
  4. SPIRONOLACTONE [Concomitant]
  5. ASCORBIC ACID [Concomitant]
  6. FOLIC ACID [Concomitant]
  7. PYRIDOXINE HYDROCHLORIDE [Concomitant]
  8. RETINOL [Concomitant]

REACTIONS (3)
  - NERVOUSNESS [None]
  - PNEUMONIA [None]
  - RESPIRATORY FAILURE [None]
